FAERS Safety Report 4737582-6 (Version None)
Quarter: 2005Q3

REPORT INFORMATION
  Report Type: 
  Country: None (occurrence: None)
  Receive Date: 20050809
  Receipt Date: 20050513
  Transmission Date: 20060218
  Serious: No
  Sender: FDA-Public Use
  Company Number: US-GLAXOSMITHKLINE-A0558480A

PATIENT
  Age: 71 Year

DRUGS (1)
  1. COMMIT [Suspect]
     Dates: end: 20050512

REACTIONS (1)
  - BLOOD SODIUM DECREASED [None]
